FAERS Safety Report 8201565-4 (Version None)
Quarter: 2012Q1

REPORT INFORMATION
  Report Type: 
  Country: None (occurrence: None)
  Receive Date: 20120307
  Receipt Date: 20120221
  Transmission Date: 20120608
  Serious: Yes (Other)
  Sender: FDA-Public Use
  Company Number: GB-DEXPHARM-20120015

PATIENT
  Age: 4 Year
  Sex: Male

DRUGS (1)
  1. OMEPRAZOLE [Suspect]
     Indication: BARRETT'S OESOPHAGUS
     Dosage: 40 MG MILLIGRAM(S), 1 IN 1 DAY 20 MG MILLIGRAM(S), 1 IN 1 DAY

REACTIONS (6)
  - HYPOMAGNESAEMIA [None]
  - HYPOCALCAEMIA [None]
  - BLOOD PARATHYROID HORMONE DECREASED [None]
  - TETANY [None]
  - MUSCLE SPASMS [None]
  - ELECTROCARDIOGRAM QT PROLONGED [None]
